FAERS Safety Report 19363978 (Version 3)
Quarter: 2021Q3

REPORT INFORMATION
  Report Type: Spontaneous
  Country: US (occurrence: US)
  Receive Date: 20210603
  Receipt Date: 20210708
  Transmission Date: 20211014
  Serious: No
  Sender: FDA-Public Use
  Company Number: US-GILEAD-2021-0533358

PATIENT
  Sex: Female

DRUGS (2)
  1. VITAMIN D [VITAMIN D NOS] [Concomitant]
     Active Substance: VITAMIN D NOS
  2. SOFOSBUVIR;VELPATASVIR [Suspect]
     Active Substance: SOFOSBUVIR\VELPATASVIR
     Indication: CHRONIC HEPATITIS C
     Dosage: 1 DISAGE FORM QD
     Route: 048
     Dates: start: 202105

REACTIONS (2)
  - Drug effect less than expected [Unknown]
  - Fatigue [Not Recovered/Not Resolved]
